FAERS Safety Report 9881530 (Version 2)
Quarter: 2014Q1

REPORT INFORMATION
  Report Type: Report from Study
  Country: US (occurrence: US)
  Receive Date: 20140207
  Receipt Date: 20140319
  Transmission Date: 20141002
  Serious: Yes (Death)
  Sender: FDA-Public Use
  Company Number: US-SA-2014SA014814

PATIENT
  Age: 67 Year
  Sex: Female

DRUGS (3)
  1. CAMPATH [Suspect]
     Indication: MYCOSIS FUNGOIDES
     Route: 065
  2. CAMPATH [Suspect]
     Indication: NON-HODGKIN^S LYMPHOMA
     Route: 065
  3. ALL OTHER THERAPEUTIC PRODUCTS [Concomitant]

REACTIONS (1)
  - Death [Fatal]
